FAERS Safety Report 9506516 (Version 1)
Quarter: 2013Q3

REPORT INFORMATION
  Report Type: Spontaneous
  Country: US (occurrence: None)
  Receive Date: 20130905
  Receipt Date: 20130905
  Transmission Date: 20140515
  Serious: Yes (Life-Threatening)
  Sender: FDA-Public Use
  Company Number: None

PATIENT
  Age: 71 Year
  Sex: Female
  Weight: 63.5 kg

DRUGS (9)
  1. RENACIDIN [Suspect]
     Indication: NEPHROLITHIASIS
     Dosage: 50 ML/HR IRRIGATION
     Dates: start: 20130821, end: 20130826
  2. DOCUSATE [Concomitant]
  3. LOVENOX [Concomitant]
  4. FLUCONAZOLE [Concomitant]
  5. MAGNESIUM HYDROXIDE [Concomitant]
  6. BYSTOLIC [Concomitant]
  7. WARFARIN [Concomitant]
  8. PERCOCET [Concomitant]
  9. LACTATED RINGERS [Concomitant]

REACTIONS (2)
  - Somnolence [None]
  - Blood magnesium increased [None]
